FAERS Safety Report 4819832-0 (Version None)
Quarter: 2005Q4

REPORT INFORMATION
  Report Type: 
  Country: None (occurrence: None)
  Receive Date: 20051102
  Receipt Date: 20051018
  Transmission Date: 20060501
  Serious: Yes (Hospitalization)
  Sender: FDA-Public Use
  Company Number: 2005S1000271

PATIENT
  Age: 59 Year
  Sex: Female

DRUGS (12)
  1. ACITRETIN (ACITRETIN) (10 MG) [Suspect]
     Indication: ERYTHRODERMIC PSORIASIS
     Dosage: 20 MG; QD; PO
     Route: 048
     Dates: start: 20050805, end: 20050830
  2. BROMAZEPAM [Concomitant]
  3. ASPIRIN [Concomitant]
  4. LEVAXIN [Concomitant]
  5. NEXIUM [Concomitant]
  6. CITALOPRAM [Concomitant]
  7. IDEOS [Concomitant]
  8. IPREN [Concomitant]
  9. STESOLID [Concomitant]
  10. HYDROXYZINE HYDROCHLORIDE [Concomitant]
  11. IMPUGAN [Concomitant]
  12. FOSAMAX [Concomitant]

REACTIONS (10)
  - ACUTE RESPIRATORY DISTRESS SYNDROME [None]
  - CHEST X-RAY ABNORMAL [None]
  - COUGH [None]
  - FLUID RETENTION [None]
  - GENERAL PHYSICAL HEALTH DETERIORATION [None]
  - LUNG INFILTRATION [None]
  - OXYGEN SATURATION DECREASED [None]
  - PSORIASIS [None]
  - RESPIRATORY FAILURE [None]
  - URINE OUTPUT DECREASED [None]
